FAERS Safety Report 21206953 (Version 5)
Quarter: 2022Q4

REPORT INFORMATION
  Report Type: Spontaneous
  Country: US (occurrence: US)
  Receive Date: 20220812
  Receipt Date: 20221006
  Transmission Date: 20230112
  Serious: Yes (Other)
  Sender: FDA-Public Use
  Company Number: US-PFIZER INC-PV202200038604

PATIENT
  Age: 51 Year
  Sex: Female
  Weight: 82.191 kg

DRUGS (18)
  1. AZITHROMYCIN [Suspect]
     Active Substance: AZITHROMYCIN
     Indication: Babesiosis
     Dosage: 250 MG, 2X/DAY (250 MG 12 HOURS)
     Route: 048
  2. CLINDAMYCIN HYDROCHLORIDE [Suspect]
     Active Substance: CLINDAMYCIN HYDROCHLORIDE
     Indication: Babesiosis
     Dosage: 300 MG, 2X/DAY (300 MG 12 HOURS)
     Route: 048
  3. DOXYCYCLINE HYCLATE [Suspect]
     Active Substance: DOXYCYCLINE HYCLATE
     Indication: Babesiosis
     Dosage: 200 MG, 2X/DAY (200 MG 12 HOURS)
     Route: 048
  4. DAPSONE [Suspect]
     Active Substance: DAPSONE
     Indication: Babesiosis
     Dosage: 50 MG, ALTERNATE DAY (50 MG 2 DAYS)
  5. DAPSONE [Suspect]
     Active Substance: DAPSONE
     Dosage: 50 MG, 1X/DAY (50 MG 1 DAYS)
  6. ATOVAQUONE [Suspect]
     Active Substance: ATOVAQUONE
     Indication: Babesiosis
     Dosage: 100 MG, 2X/DAY
     Route: 048
  7. HYDROXYCHLOROQUINE [Suspect]
     Active Substance: HYDROXYCHLOROQUINE
     Indication: Babesiosis
     Dosage: 200 MG, 2X/DAY (200 MG 12 HOURS)
     Route: 048
  8. CEFDINIR [Suspect]
     Active Substance: CEFDINIR
     Indication: Babesiosis
     Dosage: 300 MG, 2X/DAY (300 MG 12 HOURS)
     Route: 048
  9. NYSTATIN [Suspect]
     Active Substance: NYSTATIN
     Indication: Babesiosis
     Dosage: 500000 IU, 2X/DAY
     Route: 048
  10. NYSTATIN [Suspect]
     Active Substance: NYSTATIN
     Dosage: 50000 IU, 2X/DAY
     Route: 048
  11. MALARONE [Suspect]
     Active Substance: ATOVAQUONE\PROGUANIL HYDROCHLORIDE
     Indication: Babesiosis
     Dosage: 250 MG, 2X/DAY
     Route: 048
  12. MALARONE [Suspect]
     Active Substance: ATOVAQUONE\PROGUANIL HYDROCHLORIDE
     Indication: Parasite blood test positive
  13. HERBALS [Suspect]
     Active Substance: HERBALS
     Indication: Babesiosis
     Dosage: UNK
  14. HERBALS [Suspect]
     Active Substance: HERBALS
     Indication: Babesiosis
     Dosage: UNK
  15. RIFAMPIN [Suspect]
     Active Substance: RIFAMPIN
     Indication: Babesiosis
     Dosage: 300 MG 12 HOURS
     Route: 048
  16. HYDROXYCHLOROQUINE DIPHOSPHATE [Suspect]
     Active Substance: HYDROXYCHLOROQUINE DIPHOSPHATE
     Indication: Babesiosis
     Dosage: 200 MG, 2X/DAY (200 MG 12 HOURS)
     Route: 048
  17. MINOCYCLINE [Suspect]
     Active Substance: MINOCYCLINE HYDROCHLORIDE
     Indication: Babesiosis
     Dosage: 100 MG, 2X/DAY (100 MG 12 HOURS)
     Route: 048
  18. COARTEM [Suspect]
     Active Substance: ARTEMETHER\LUMEFANTRINE
     Indication: Babesiosis
     Dosage: UNK, 2X/DAY
     Route: 048

REACTIONS (8)
  - Lyme disease [Recovering/Resolving]
  - Disease recurrence [Recovering/Resolving]
  - Drug ineffective [Recovering/Resolving]
  - Anaemia [Unknown]
  - Nausea [Unknown]
  - Vomiting [Unknown]
  - Fungal infection [Unknown]
  - Off label use [Unknown]
